FAERS Safety Report 5173208-8 (Version None)
Quarter: 2006Q4

REPORT INFORMATION
  Report Type: 
  Country: None (occurrence: None)
  Receive Date: 20061214
  Receipt Date: 20060705
  Transmission Date: 20070319
  Serious: Yes (Death, Hospitalization)
  Sender: FDA-Public Use
  Company Number: ZA-AVENTIS-200617103GDDC

PATIENT
  Age: 63 Year
  Sex: Female
  Weight: 88 kg

DRUGS (1)
  1. DOCETAXEL [Suspect]
     Indication: BREAST CANCER STAGE IV
     Route: 041
     Dates: start: 20060209, end: 20060309

REACTIONS (4)
  - BREAST CANCER [None]
  - DYSPNOEA [None]
  - PLEURAL EFFUSION [None]
  - RESPIRATORY FAILURE [None]
